FAERS Safety Report 7295249-7 (Version None)
Quarter: 2011Q1

REPORT INFORMATION
  Report Type: 
  Country: None (occurrence: None)
  Receive Date: 20110216
  Receipt Date: 20110209
  Transmission Date: 20110831
  Serious: Yes (Other)
  Sender: FDA-Public Use
  Company Number: US-SANOFI-AVENTIS-2011SA007040

PATIENT

DRUGS (8)
  1. COZAAR [Concomitant]
     Dates: start: 20080101
  2. VITAMIN D [Concomitant]
     Dates: start: 20050101
  3. MULTAQ [Suspect]
     Indication: ATRIAL FIBRILLATION
     Route: 048
     Dates: start: 20101104, end: 20110124
  4. METOPROLOL [Concomitant]
     Dates: start: 20050101
  5. AMLODIPINE [Concomitant]
     Dates: start: 20090101
  6. COUMADIN [Concomitant]
     Dates: start: 20050401
  7. VITAMIN B-12 [Concomitant]
     Dates: start: 20050101
  8. LEVOTHYROXINE SODIUM [Concomitant]
     Dates: start: 19960101

REACTIONS (2)
  - OCULAR DISCOMFORT [None]
  - NEUROPATHY PERIPHERAL [None]
